FAERS Safety Report 8505383-9 (Version None)
Quarter: 2012Q2

REPORT INFORMATION
  Report Type: 
  Country: None (occurrence: None)
  Receive Date: 20120405
  Receipt Date: 20091014
  Transmission Date: 20120825
  Serious: Yes (Other)
  Sender: FDA-Public Use
  Company Number: PHEH2009US13769

PATIENT
  Age: 70 Year
  Sex: Female
  Weight: 76.2 kg

DRUGS (19)
  1. GABAPENTIN [Concomitant]
  2. RECLAST [Suspect]
  3. GLUCOSAMINE W/CHONDROITIN (CHONDROITIN SULFATE, GLUCOSAMINE) [Concomitant]
  4. GINKGO BILOBA (GINKGO BILOBA) [Concomitant]
  5. VITAMIN B12 [Concomitant]
  6. LEXAPRO [Concomitant]
  7. EPRCOCET (OXYCODONE HYDROCHLORIDE, PARACETAMOL) [Concomitant]
  8. VALIUM [Concomitant]
  9. CRESTOR [Concomitant]
  10. BECONASE [Concomitant]
  11. CENTRUM SILVER (ASCORBIC ACID, CALCIUM, MINERALS NOS, RETINOL, TOCOPHE [Concomitant]
  12. COZAAR [Concomitant]
  13. MAXZIDE [Concomitant]
  14. ASPIRIN [Concomitant]
  15. ASCORBIC ACID [Concomitant]
  16. CALCIUM CARBONATE [Concomitant]
  17. VITAMIN D [Concomitant]
  18. SKELAXIN [Concomitant]
  19. COLACE (DOCUSATE SODIUM) [Concomitant]

REACTIONS (1)
  - HYPERTENSION [None]
